FAERS Safety Report 24837695 (Version 2)
Quarter: 2025Q1

REPORT INFORMATION
  Report Type: Spontaneous
  Country: KR (occurrence: KR)
  Receive Date: 20250113
  Receipt Date: 20250120
  Transmission Date: 20250409
  Serious: Yes (Disabling, Other)
  Sender: GILEAD
  Company Number: KR-GILEAD-2025-0699146

PATIENT
  Age: 58 Year
  Sex: Female

DRUGS (2)
  1. TRODELVY [Suspect]
     Active Substance: SACITUZUMAB GOVITECAN-HZIY
     Indication: Triple negative breast cancer
     Route: 065
     Dates: start: 20240206
  2. TRODELVY [Suspect]
     Active Substance: SACITUZUMAB GOVITECAN-HZIY
     Route: 065
     Dates: start: 202411, end: 202411

REACTIONS (3)
  - Disease progression [Unknown]
  - Neutropenia [Unknown]
  - Diarrhoea [Unknown]

NARRATIVE: CASE EVENT DATE: 20240801
